FAERS Safety Report 18141649 (Version 5)
Quarter: 2020Q4

REPORT INFORMATION
  Report Type: Spontaneous
  Country: US (occurrence: US)
  Receive Date: 20200812
  Receipt Date: 20201021
  Transmission Date: 20210113
  Serious: Yes (Other)
  Sender: FDA-Public Use
  Company Number: US-PFIZER INC-2018378578

PATIENT
  Age: 78 Year
  Sex: Female
  Weight: 60.33 kg

DRUGS (3)
  1. NITROGLYCERIN. [Suspect]
     Active Substance: NITROGLYCERIN
     Indication: MYOCARDIAL INFARCTION
     Dosage: UNK
  2. NITROGLYCERIN. [Suspect]
     Active Substance: NITROGLYCERIN
     Dosage: 0.4 MG, AS NEEDED (TAKE ONE TABLET BY MOUTH EVERY 5 MINUTES UP TO THREE TIMES)
     Route: 048
  3. NITROGLYCERIN. [Suspect]
     Active Substance: NITROGLYCERIN
     Indication: ANGINA PECTORIS
     Dosage: UNK

REACTIONS (7)
  - Exposure via skin contact [Unknown]
  - Pleural effusion [Unknown]
  - Product packaging quantity issue [Unknown]
  - Pulmonary oedema [Unknown]
  - Visual impairment [Unknown]
  - Chronic obstructive pulmonary disease [Unknown]
  - Accidental exposure to product [Unknown]
